FAERS Safety Report 4828478-X (Version None)
Quarter: 2005Q4

REPORT INFORMATION
  Report Type: 
  Country: None (occurrence: None)
  Receive Date: 20051110
  Receipt Date: 20051108
  Transmission Date: 20060501
  Serious: Yes (Death)
  Sender: FDA-Public Use
  Company Number: S05-ITA-03865-01

PATIENT
  Age: 74 Year
  Sex: Male

DRUGS (13)
  1. ELOPRAM (CITALOPRAM) (CITALOPRAM) [Suspect]
     Indication: DEPRESSION
     Dosage: 20 MG QD PO
     Route: 048
     Dates: start: 20040201, end: 20050910
  2. SEROQUEL [Suspect]
     Indication: PSYCHOMOTOR HYPERACTIVITY
     Dosage: 125 MG QD PO
     Route: 048
     Dates: start: 20050701, end: 20050910
  3. SEROQUEL [Suspect]
     Indication: PSYCHOMOTOR HYPERACTIVITY
     Dosage: 100 MG QHS PO
     Route: 048
     Dates: start: 20041001, end: 20040701
  4. SEROQUEL [Suspect]
     Indication: PSYCHOMOTOR HYPERACTIVITY
     Dosage: 125 MG QD PO
     Route: 048
     Dates: start: 20041006, end: 20041001
  5. HALOPERIDOL [Suspect]
     Indication: PSYCHOMOTOR HYPERACTIVITY
     Dosage: 15 DROPS QD PO
     Route: 048
     Dates: start: 20050701, end: 20050910
  6. HALOPERIDOL [Suspect]
     Indication: PSYCHOMOTOR HYPERACTIVITY
     Dosage: 10 DROPS QD PO
     Route: 048
     Dates: start: 20041101, end: 20050701
  7. HALOPERIDOL [Suspect]
     Indication: PSYCHOMOTOR HYPERACTIVITY
     Dosage: 15 DROPS QD PO
     Route: 048
     Dates: start: 20041001, end: 20041101
  8. HALOPERIDOL [Suspect]
     Indication: PSYCHOMOTOR HYPERACTIVITY
     Dosage: 5 DROPS QD PO
     Route: 048
     Dates: start: 20041001, end: 20041101
  9. HALOPERIDOL [Suspect]
     Indication: PSYCHOMOTOR HYPERACTIVITY
     Dosage: 20 DROPS QD PO
     Route: 048
     Dates: start: 20041001, end: 20041001
  10. HALOPERIDOL [Suspect]
     Indication: PSYCHOMOTOR HYPERACTIVITY
     Dosage: 10 DROPS QD PO
     Route: 048
     Dates: start: 20041001, end: 20041001
  11. LORAZEPAM [Concomitant]
  12. ZYPREXA [Concomitant]
  13. HALOPERIDOL [Suspect]
     Indication: PSYCHOMOTOR HYPERACTIVITY
     Dosage: 105 MG QD PO
     Dates: start: 20040201, end: 20041001

REACTIONS (12)
  - AGITATION [None]
  - CALCINOSIS [None]
  - CONDITION AGGRAVATED [None]
  - ELECTROCARDIOGRAM T WAVE AMPLITUDE DECREASED [None]
  - EXTRAPYRAMIDAL DISORDER [None]
  - FALL [None]
  - GENITOURINARY TRACT INFECTION [None]
  - INSOMNIA [None]
  - MUSCLE RIGIDITY [None]
  - PYREXIA [None]
  - VENTRICULAR EXTRASYSTOLES [None]
  - VENTRICULAR FIBRILLATION [None]
